FAERS Safety Report 23036179 (Version 1)
Quarter: 2023Q4

REPORT INFORMATION
  Report Type: Spontaneous
  Country: US (occurrence: US)
  Receive Date: 20231006
  Receipt Date: 20231006
  Transmission Date: 20240109
  Serious: Yes (Other)
  Sender: FDA-Public Use
  Company Number: US-EYEPOINT PHARMACEUTICALS, INC.-US-EYP-22-00030

PATIENT
  Age: 70 Year
  Sex: Female

DRUGS (1)
  1. DEXYCU [Suspect]
     Active Substance: DEXAMETHASONE
     Indication: Post procedural inflammation
     Dosage: IN THE ANTERIOR CHAMBER OF THE LEFT EYE/OS
     Route: 031
     Dates: start: 20220210, end: 20220210

REACTIONS (3)
  - Cystoid macular oedema [Unknown]
  - Iritis [Recovering/Resolving]
  - Off label use [Unknown]

NARRATIVE: CASE EVENT DATE: 20220210
